FAERS Safety Report 19378161 (Version 9)
Quarter: 2025Q3

REPORT INFORMATION
  Report Type: Report from Study
  Country: US (occurrence: US)
  Receive Date: 20210605
  Receipt Date: 20250915
  Transmission Date: 20251021
  Serious: Yes (Other)
  Sender: TAKEDA
  Company Number: US-TAKEDA-2021TUS022124

PATIENT
  Age: 54 Year
  Sex: Female
  Weight: 63 kg

DRUGS (42)
  1. HUMAN IMMUNOGLOBULIN G [Suspect]
     Active Substance: HUMAN IMMUNOGLOBULIN G
     Indication: Immunodeficiency common variable
     Dosage: 35 GRAM, Q4WEEKS
  2. HUMAN IMMUNOGLOBULIN G [Suspect]
     Active Substance: HUMAN IMMUNOGLOBULIN G
     Indication: Polyneuropathy
     Dosage: 30 GRAM, Q4WEEKS
  3. HUMAN IMMUNOGLOBULIN G [Suspect]
     Active Substance: HUMAN IMMUNOGLOBULIN G
  4. HUMAN IMMUNOGLOBULIN G [Suspect]
     Active Substance: HUMAN IMMUNOGLOBULIN G
     Dosage: 35 GRAM, Q4WEEKS
  5. HUMAN IMMUNOGLOBULIN G [Suspect]
     Active Substance: HUMAN IMMUNOGLOBULIN G
     Dosage: 35 GRAM, Q4WEEKS
     Dates: start: 20210331
  6. ACETAMINOPHEN [Concomitant]
     Active Substance: ACETAMINOPHEN
  7. DIPHENHYDRAMINE [Concomitant]
     Active Substance: DIPHENHYDRAMINE
  8. LIDOCAINE [Concomitant]
     Active Substance: LIDOCAINE
  9. SODIUM CHLORIDE [Concomitant]
     Active Substance: SODIUM CHLORIDE
  10. SODIUM CHLORIDE [Concomitant]
     Active Substance: SODIUM CHLORIDE
  11. EPINEPHRINE [Concomitant]
     Active Substance: EPINEPHRINE
  12. SINGULAIR [Concomitant]
     Active Substance: MONTELUKAST SODIUM
  13. CELEBREX [Concomitant]
     Active Substance: CELECOXIB
  14. FLONASE [Concomitant]
     Active Substance: FLUTICASONE PROPIONATE
  15. SPIRONOLACTONE [Concomitant]
     Active Substance: SPIRONOLACTONE
  16. TELMISARTAN [Concomitant]
     Active Substance: TELMISARTAN
  17. CALCIUM\CHOLECALCIFEROL [Concomitant]
     Active Substance: CALCIUM\CHOLECALCIFEROL
  18. AZELASTINE [Concomitant]
     Active Substance: AZELASTINE
  19. TOPAMAX [Concomitant]
     Active Substance: TOPIRAMATE
  20. WELLBUTRIN [Concomitant]
     Active Substance: BUPROPION HYDROCHLORIDE
  21. VITAMIN D3 [Concomitant]
     Active Substance: CHOLECALCIFEROL
  22. FLUBLOK QUADRIVALENT NOS [Concomitant]
     Active Substance: INFLUENZA VIRUS VACCINE
  23. ADVIL [Concomitant]
     Active Substance: IBUPROFEN
  24. ACTIVELLA [Concomitant]
     Active Substance: ESTRADIOL\NORETHINDRONE ACETATE
  25. MAXALT [Concomitant]
     Active Substance: RIZATRIPTAN BENZOATE
  26. FLUTICASONE PROPIONATE [Concomitant]
     Active Substance: FLUTICASONE PROPIONATE
  27. AZELASTINE HYDROCHLORIDE [Concomitant]
     Active Substance: AZELASTINE HYDROCHLORIDE
  28. ORACEA [Concomitant]
     Active Substance: DOXYCYCLINE
  29. WINLEVI [Concomitant]
     Active Substance: CLASCOTERONE
  30. ADDERALL [Concomitant]
     Active Substance: AMPHETAMINE ASPARTATE\AMPHETAMINE SULFATE\DEXTROAMPHETAMINE SACCHARATE\DEXTROAMPHETAMINE SULFATE
  31. OMEPRAZOLE [Concomitant]
     Active Substance: OMEPRAZOLE
  32. TYLENOL EXTRA STRENGTH [Concomitant]
     Active Substance: ACETAMINOPHEN
  33. ROSUVASTATIN CALCIUM [Concomitant]
     Active Substance: ROSUVASTATIN CALCIUM
  34. LISINOPRIL [Concomitant]
     Active Substance: LISINOPRIL
  35. DIPHENHYDRAMINE HYDROCHLORIDE [Concomitant]
     Active Substance: DIPHENHYDRAMINE HYDROCHLORIDE
  36. ASPIRIN [Concomitant]
     Active Substance: ASPIRIN
  37. TOPIRAMATE [Concomitant]
     Active Substance: TOPIRAMATE
  38. TIZANIDINE HYDROCHLORIDE [Concomitant]
     Active Substance: TIZANIDINE HYDROCHLORIDE
  39. METRONIDAZOLE [Concomitant]
     Active Substance: METRONIDAZOLE
  40. ASPIRIN [Concomitant]
     Active Substance: ASPIRIN
  41. CYANOCOBALAMIN [Concomitant]
     Active Substance: CYANOCOBALAMIN
  42. LINZESS [Concomitant]
     Active Substance: LINACLOTIDE

REACTIONS (14)
  - Appendicitis [Unknown]
  - Renal papillary necrosis [Unknown]
  - Post procedural infection [Recovered/Resolved]
  - Discharge [Unknown]
  - Product dose omission issue [Unknown]
  - Tenderness [Unknown]
  - Respiratory tract infection [Unknown]
  - Product distribution issue [Unknown]
  - Sinusitis [Unknown]
  - Rash pruritic [Unknown]
  - Pain [Unknown]
  - Rash [Recovered/Resolved]
  - Headache [Recovered/Resolved]
  - Fatigue [Recovered/Resolved]

NARRATIVE: CASE EVENT DATE: 20210526
